FAERS Safety Report 18019385 (Version 4)
Quarter: 2021Q2

REPORT INFORMATION
  Report Type: Spontaneous
  Country: US (occurrence: US)
  Receive Date: 20200714
  Receipt Date: 20210622
  Transmission Date: 20210717
  Serious: No
  Sender: FDA-Public Use
  Company Number: US-PFIZER INC-2020260110

PATIENT
  Age: 9 Year
  Sex: Female
  Weight: 24.94 kg

DRUGS (4)
  1. GENOTROPIN [Suspect]
     Active Substance: SOMATROPIN
     Dosage: 0.9 MG
  2. GENOTROPIN [Suspect]
     Active Substance: SOMATROPIN
     Dosage: 0.6 UNKNOWN UNITS, GETS AN INJECTION EVERY OTHER NIGHT
     Dates: start: 202006
  3. GENOTROPIN [Suspect]
     Active Substance: SOMATROPIN
     Dosage: 0.9 MG (6 DAYS PER WEEK)
  4. GENOTROPIN [Suspect]
     Active Substance: SOMATROPIN
     Indication: NEUROBLASTOMA
     Dosage: 0.6 MG, DAILY
     Dates: start: 20191217

REACTIONS (6)
  - Device leakage [Unknown]
  - Injection site extravasation [Unknown]
  - Off label use [Unknown]
  - Drug dose omission by device [Unknown]
  - Device use issue [Unknown]
  - Device breakage [Unknown]
